FAERS Safety Report 8998191 (Version 2)
Quarter: 2013Q2

REPORT INFORMATION
  Report Type: Spontaneous
  Country: DE (occurrence: DE)
  Receive Date: 20130104
  Receipt Date: 20130611
  Transmission Date: 20140414
  Serious: Yes (Hospitalization, Other)
  Sender: FDA-Public Use
  Company Number: DE-AMGEN-DEUSP2012084341

PATIENT
  Age: 67 Year
  Sex: Female
  Weight: 110 kg

DRUGS (4)
  1. ENBREL [Suspect]
     Indication: PSORIATIC ARTHROPATHY
     Dosage: 50 MG, WEEKLY
     Route: 065
     Dates: start: 20091117
  2. L-THYROXIN [Concomitant]
     Dosage: UNK
  3. IBU [Concomitant]
     Dosage: UNK
  4. TRAMADOLOR [Concomitant]
     Dosage: UNK

REACTIONS (6)
  - Arthropathy [Not Recovered/Not Resolved]
  - Haemoglobin decreased [Unknown]
  - Vomiting [Not Recovered/Not Resolved]
  - Apathy [Not Recovered/Not Resolved]
  - Erysipelas [Not Recovered/Not Resolved]
  - Endocarditis bacterial [Not Recovered/Not Resolved]
